FAERS Safety Report 18953283 (Version 1)
Quarter: 2021Q1

REPORT INFORMATION
  Report Type: Spontaneous
  Country: US (occurrence: US)
  Receive Date: 20210228
  Receipt Date: 20210228
  Transmission Date: 20210420
  Serious: Yes (Disabling)
  Sender: FDA-Public Use
  Company Number: None

PATIENT
  Age: 35 Year
  Sex: Female
  Weight: 69.75 kg

DRUGS (4)
  1. PROBIOTICS [Concomitant]
     Active Substance: PROBIOTICS NOS
  2. IRON [Concomitant]
     Active Substance: IRON
  3. ACZONE [Concomitant]
     Active Substance: DAPSONE
  4. TRI?SPRINTEC [Suspect]
     Active Substance: ETHINYL ESTRADIOL\NORGESTIMATE
     Indication: ORAL CONTRACEPTION
     Route: 048
     Dates: start: 20210116, end: 20210226

REACTIONS (5)
  - Haematochezia [None]
  - Vomiting [None]
  - Irritable bowel syndrome [None]
  - Nausea [None]
  - Oligomenorrhoea [None]

NARRATIVE: CASE EVENT DATE: 20210118
